FAERS Safety Report 4977688-X (Version None)
Quarter: 2006Q2

REPORT INFORMATION
  Report Type: 
  Country: None (occurrence: None)
  Receive Date: 20060420
  Receipt Date: 20051103
  Transmission Date: 20061013
  Serious: No
  Sender: FDA-Public Use
  Company Number: US-GLAXOSMITHKLINE-A0580781A

PATIENT
  Age: 17 Year
  Sex: Female

DRUGS (3)
  1. ESKALITH [Suspect]
     Dosage: 450MG TWICE PER DAY
     Route: 048
  2. ZYPREXA [Concomitant]
  3. SYNTHROID [Concomitant]

REACTIONS (1)
  - THYROID DISORDER [None]
